FAERS Safety Report 7221110-X (Version None)
Quarter: 2011Q1

REPORT INFORMATION
  Report Type: 
  Country: None (occurrence: None)
  Receive Date: 20110112
  Receipt Date: 20110106
  Transmission Date: 20110831
  Serious: Yes (Other)
  Sender: FDA-Public Use
  Company Number: US-PFIZER INC-2011004246

PATIENT
  Sex: Male
  Weight: 90.703 kg

DRUGS (7)
  1. ISOSORBIDE [Concomitant]
     Dosage: UNK
  2. TOPROL-XL [Concomitant]
     Dosage: UNK
  3. TOVIAZ [Suspect]
     Indication: URINARY INCONTINENCE
  4. TOVIAZ [Suspect]
     Indication: MICTURITION URGENCY
  5. WARFARIN [Concomitant]
     Dosage: UNK
  6. XALATAN [Concomitant]
     Indication: GLAUCOMA
     Dosage: UNK
  7. TOVIAZ [Suspect]
     Indication: PROSTATE CANCER
     Dosage: 4 MG, 1X/DAY
     Route: 048
     Dates: start: 20090101, end: 20100101

REACTIONS (3)
  - DRY MOUTH [None]
  - VISION BLURRED [None]
  - IMPAIRED DRIVING ABILITY [None]
